FAERS Safety Report 9154885 (Version 1)
Quarter: 2013Q1

REPORT INFORMATION
  Report Type: Spontaneous
  Country: US (occurrence: US)
  Receive Date: 20130311
  Receipt Date: 20130311
  Transmission Date: 20140127
  Serious: No
  Sender: FDA-Public Use
  Company Number: US-ABBOTT-12P-163-0988322-00

PATIENT
  Sex: Female

DRUGS (2)
  1. LUPRON DEPOT [Suspect]
     Indication: INFERTILITY FEMALE
     Dosage: EVERY SIX TO EIGHT WEEKS
     Dates: start: 201209
  2. LUPRON DEPOT [Suspect]
     Dates: start: 20100819, end: 201209

REACTIONS (1)
  - Off label use [Unknown]
